FAERS Safety Report 9022303 (Version 1)
Quarter: 2013Q1

REPORT INFORMATION
  Report Type: Spontaneous
  Country: AU (occurrence: AU)
  Receive Date: 20130118
  Receipt Date: 20130118
  Transmission Date: 20140127
  Serious: No
  Sender: FDA-Public Use
  Company Number: AU-JNJFOC-20130102345

PATIENT
  Sex: Female
  Weight: 60 kg

DRUGS (1)
  1. DUROGESIC [Suspect]
     Indication: PRODUCT USED FOR UNKNOWN INDICATION
     Route: 062

REACTIONS (5)
  - Hyperhidrosis [Unknown]
  - Breakthrough pain [Not Recovered/Not Resolved]
  - Wrong technique in drug usage process [Unknown]
  - Product adhesion issue [Unknown]
  - Product quality issue [Unknown]
